FAERS Safety Report 6308381-9 (Version None)
Quarter: 2009Q3

REPORT INFORMATION
  Report Type: 
  Country: None (occurrence: None)
  Receive Date: 20090813
  Receipt Date: 20090804
  Transmission Date: 20100115
  Serious: Yes (Other)
  Sender: FDA-Public Use
  Company Number: US-BAXTER-2009BH012534

PATIENT

DRUGS (1)
  1. HEPARIN [Suspect]
     Indication: CARDIAC DISORDER
     Route: 065

REACTIONS (1)
  - HAEMOPTYSIS [None]
